FAERS Safety Report 7545008-2 (Version None)
Quarter: 2011Q2

REPORT INFORMATION
  Report Type: 
  Country: None (occurrence: None)
  Receive Date: 20110525
  Receipt Date: 20110131
  Transmission Date: 20111010
  Serious: No
  Sender: FDA-Public Use
  Company Number: 322595

PATIENT
  Sex: Male

DRUGS (1)
  1. VICTOZA [Suspect]
     Indication: PRODUCT USED FOR UNKNOWN INDICATION
     Dosage: 1.2 MG, QD

REACTIONS (5)
  - CHEST PAIN [None]
  - PAIN [None]
  - ABDOMINAL PAIN UPPER [None]
  - INSOMNIA [None]
  - BURN OESOPHAGEAL [None]
